FAERS Safety Report 21211079 (Version 2)
Quarter: 2022Q3

REPORT INFORMATION
  Report Type: Spontaneous
  Country: US (occurrence: US)
  Receive Date: 20220815
  Receipt Date: 20220928
  Transmission Date: 20221027
  Serious: No
  Sender: FDA-Public Use
  Company Number: US-Calliditas-2022CAL00257

PATIENT
  Age: 54 Year
  Sex: Male

DRUGS (8)
  1. TARPEYO [Suspect]
     Active Substance: BUDESONIDE
     Indication: Haematuria
     Dosage: 16 MG (4 MG CAPSULES) ONCE DAILY
     Route: 048
     Dates: start: 20220618
  2. FARXIGA [Suspect]
     Active Substance: DAPAGLIFLOZIN PROPANEDIOL
  3. FISH OIL [Concomitant]
     Active Substance: FISH OIL
  4. LOSARTAN [Concomitant]
     Active Substance: LOSARTAN
  5. KERENDIA [Concomitant]
     Active Substance: FINERENONE
  6. DULOXETINE [Concomitant]
     Active Substance: DULOXETINE
     Indication: Arthritis
  7. ROSUVASTATIN [Concomitant]
     Active Substance: ROSUVASTATIN
  8. OXYCODONE [Suspect]
     Active Substance: OXYCODONE

REACTIONS (5)
  - Acne [Not Recovered/Not Resolved]
  - Peripheral nerve operation [Recovered/Resolved]
  - Peripheral nerve lesion [Unknown]
  - Hypersensitivity [Unknown]
  - Peripheral nerve lesion [Unknown]

NARRATIVE: CASE EVENT DATE: 20220701
